FAERS Safety Report 9873433 (Version 1)
Quarter: 2014Q1

REPORT INFORMATION
  Report Type: Other
  Country: US (occurrence: US)
  Receive Date: 20140206
  Receipt Date: 20140206
  Transmission Date: 20141002
  Serious: No
  Sender: FDA-Public Use
  Company Number: US-ACORDA-ACO_34122_2013

PATIENT
  Sex: Female
  Weight: 108.84 kg

DRUGS (4)
  1. AMPYRA [Suspect]
     Indication: GAIT DISTURBANCE
     Dosage: 10 MG, BID
     Route: 048
     Dates: start: 201211, end: 2013
  2. GILENYA [Concomitant]
     Indication: PRODUCT USED FOR UNKNOWN INDICATION
     Dosage: UNK
     Route: 065
  3. CYMBALTA [Concomitant]
     Indication: PRODUCT USED FOR UNKNOWN INDICATION
     Dosage: UNK
     Route: 065
  4. AMITRIPTYLINE HCL [Concomitant]
     Indication: INITIAL INSOMNIA
     Dosage: UNK
     Route: 065
     Dates: start: 2010

REACTIONS (2)
  - Headache [Recovered/Resolved]
  - Initial insomnia [Recovered/Resolved]
